FAERS Safety Report 20579009 (Version 2)
Quarter: 2022Q1

REPORT INFORMATION
  Report Type: Report from Study
  Country: CN (occurrence: None)
  Receive Date: 20220310
  Receipt Date: 20220323
  Transmission Date: 20220423
  Serious: Yes (Hospitalization)
  Sender: FDA-Public Use
  Company Number: CN-ROCHE-3013737

PATIENT
  Age: 63 Year
  Sex: Male
  Weight: 56 kg

DRUGS (41)
  1. ATEZOLIZUMAB [Suspect]
     Active Substance: ATEZOLIZUMAB
     Indication: Oesophageal squamous cell carcinoma metastatic
     Dosage: START DATE OF MOST RECENT DOSE OF STUDY DRUG PRIOR TO AE 06-JAN-2022
     Route: 041
     Dates: start: 20211124
  2. TIRAGOLUMAB [Suspect]
     Active Substance: TIRAGOLUMAB
     Indication: Oesophageal squamous cell carcinoma metastatic
     Dosage: START DATE OF MOST RECENT DOSE OF STUDY DRUG PRIOR TO AE 06-JAN-2022
     Route: 042
     Dates: start: 20211124
  3. PACLITAXEL [Suspect]
     Active Substance: PACLITAXEL
     Indication: Oesophageal squamous cell carcinoma metastatic
     Dosage: DOSE LAST STUDY DRUG ADMIN PRIOR AE IS 278 MG?START DATE OF MOST RECENT DOSE OF STUDY DRUG PRIOR TO
     Route: 042
     Dates: start: 20211124
  4. CISPLATIN [Suspect]
     Active Substance: CISPLATIN
     Indication: Oesophageal squamous cell carcinoma metastatic
     Dosage: DOSE LAST STUDY DRUG ADMIN PRIOR AE IS 95 MG?START DATE OF MOST RECENT DOSE OF STUDY DRUG PRIOR TO A
     Route: 042
     Dates: start: 20211124
  5. EUTHYROX [Concomitant]
     Active Substance: LEVOTHYROXINE SODIUM
     Dates: start: 20211122
  6. SODIUM CHLORIDE [Concomitant]
     Active Substance: SODIUM CHLORIDE
     Dates: start: 20211214, end: 20211217
  7. SODIUM CHLORIDE [Concomitant]
     Active Substance: SODIUM CHLORIDE
     Dosage: ONGOING NO?GIVEN FOR PROPHYLAXIS YES
     Route: 048
     Dates: start: 20220105, end: 20220107
  8. SODIUM CHLORIDE [Concomitant]
     Active Substance: SODIUM CHLORIDE
     Dates: start: 20220126, end: 20220127
  9. SODIUM CHLORIDE [Concomitant]
     Active Substance: SODIUM CHLORIDE
     Dosage: ONGOING NO?GIVEN FOR PROPHYLAXIS YES
     Route: 048
     Dates: start: 20220216, end: 20220216
  10. SODIUM CHLORIDE [Concomitant]
     Active Substance: SODIUM CHLORIDE
     Dosage: ONGOING NO?GIVEN FOR PROPHYLAXIS YES
     Route: 048
     Dates: start: 20220217, end: 20220217
  11. SODIUM BICARBONATE [Concomitant]
     Active Substance: SODIUM BICARBONATE
     Dates: start: 20211214, end: 20211216
  12. TAGAMET [Concomitant]
     Active Substance: CIMETIDINE
     Dates: start: 20211214, end: 20211217
  13. ONDANSETRON HYDROCHLORIDE [Concomitant]
     Active Substance: ONDANSETRON HYDROCHLORIDE
     Dates: start: 20211215, end: 20211217
  14. ONDANSETRON HYDROCHLORIDE [Concomitant]
     Active Substance: ONDANSETRON HYDROCHLORIDE
     Dosage: ONGOING NO?GIVEN FOR PROPHYLAXIS YES
     Dates: start: 20220106, end: 20220107
  15. ONDANSETRON HYDROCHLORIDE [Concomitant]
     Active Substance: ONDANSETRON HYDROCHLORIDE
     Dates: start: 20220127, end: 20220127
  16. ONDANSETRON HYDROCHLORIDE [Concomitant]
     Active Substance: ONDANSETRON HYDROCHLORIDE
     Dates: start: 20220217, end: 20220217
  17. APREPITANT [Concomitant]
     Active Substance: APREPITANT
     Dates: start: 20211215, end: 20211217
  18. APREPITANT [Concomitant]
     Active Substance: APREPITANT
     Dosage: ONGOING NO?GIVEN FOR PROPHYLAXIS YES
     Dates: start: 20220106, end: 20220107
  19. APREPITANT [Concomitant]
     Active Substance: APREPITANT
     Dosage: ONGOING NO?GIVEN FOR PROPHYLAXIS YES
     Dates: start: 20220127, end: 20220128
  20. APREPITANT [Concomitant]
     Active Substance: APREPITANT
     Dosage: ONGOING NO?GIVEN FOR PROPHYLAXIS YES
     Dates: start: 20220217, end: 20220218
  21. DEXAMETHASONE ACETATE [Concomitant]
     Active Substance: DEXAMETHASONE ACETATE
     Route: 048
     Dates: start: 20211214, end: 20211215
  22. DEXAMETHASONE ACETATE [Concomitant]
     Active Substance: DEXAMETHASONE ACETATE
     Dosage: ONGOING NO?GIVEN FOR PROPHYLAXIS YES
     Route: 048
     Dates: start: 20220105, end: 20220106
  23. DEXAMETHASONE ACETATE [Concomitant]
     Active Substance: DEXAMETHASONE ACETATE
     Dosage: ONGOING NO?GIVEN FOR PROPHYLAXIS YES
     Route: 048
     Dates: start: 20220126, end: 20220126
  24. DEXAMETHASONE ACETATE [Concomitant]
     Active Substance: DEXAMETHASONE ACETATE
     Route: 048
     Dates: start: 20220216, end: 20220217
  25. POTASSIUM CHLORIDE [Concomitant]
     Active Substance: POTASSIUM CHLORIDE
     Dates: start: 20211215, end: 20211216
  26. DIPHENHYDRAMINE HYDROCHLORIDE [Concomitant]
     Active Substance: DIPHENHYDRAMINE HYDROCHLORIDE
     Dates: start: 20211215, end: 20211215
  27. DIPHENHYDRAMINE HYDROCHLORIDE [Concomitant]
     Active Substance: DIPHENHYDRAMINE HYDROCHLORIDE
     Dosage: ONGOING NO?GIVEN FOR PROPHYLAXIS YES
     Dates: start: 20220106, end: 20220106
  28. DIPHENHYDRAMINE HYDROCHLORIDE [Concomitant]
     Active Substance: DIPHENHYDRAMINE HYDROCHLORIDE
     Dosage: ONGOING NO?GIVEN FOR PROPHYLAXIS YES
     Dates: start: 20220127, end: 20220127
  29. DIPHENHYDRAMINE HYDROCHLORIDE [Concomitant]
     Active Substance: DIPHENHYDRAMINE HYDROCHLORIDE
     Dates: start: 20220217, end: 20220217
  30. VITAMIN B6 [Concomitant]
     Active Substance: PYRIDOXINE HYDROCHLORIDE
     Dates: start: 20211214, end: 20211216
  31. VITAMIN B6 [Concomitant]
     Active Substance: PYRIDOXINE HYDROCHLORIDE
     Dosage: ONGOING NO?GIVEN FOR PROPHYLAXIS YES
     Dates: start: 20220105, end: 20220106
  32. VITAMIN B6 [Concomitant]
     Active Substance: PYRIDOXINE HYDROCHLORIDE
     Dates: start: 20220126, end: 20220127
  33. VITAMIN B6 [Concomitant]
     Active Substance: PYRIDOXINE HYDROCHLORIDE
     Dates: start: 20220216, end: 20220217
  34. CIMETIDINE [Concomitant]
     Active Substance: CIMETIDINE
     Dates: start: 20220105, end: 20220107
  35. CIMETIDINE [Concomitant]
     Active Substance: CIMETIDINE
     Dates: start: 20220126, end: 20220127
  36. CIMETIDINE [Concomitant]
     Active Substance: CIMETIDINE
     Dates: start: 20220216, end: 20220216
  37. DEXTROSE [Concomitant]
     Active Substance: DEXTROSE
     Dosage: ONGOING NO?GIVEN FOR PROPHYLAXIS YES
     Dates: start: 20220105, end: 20220106
  38. DEXTROSE [Concomitant]
     Active Substance: DEXTROSE
     Dosage: ONGOING NO?GIVEN FOR PROPHYLAXIS YES
     Dates: start: 20211215, end: 20211216
  39. DEXTROSE [Concomitant]
     Active Substance: DEXTROSE
     Dosage: ONGOING NO?GIVEN FOR PROPHYLAXIS YES
     Dates: start: 20220127, end: 20220127
  40. DIISOPROPYLAMINE DICHLOROACETATE [Concomitant]
     Dosage: ONGOING NO
     Dates: start: 20220105, end: 20220106
  41. RECOMBINANT HUMAN GRANULOCYTE COLONY STIMULATING FACTOR (UNK INGREDIEN [Concomitant]
     Dates: start: 20220208, end: 20220208

REACTIONS (1)
  - Upper respiratory tract infection [Recovered/Resolved]

NARRATIVE: CASE EVENT DATE: 20220110
